FAERS Safety Report 8826805 (Version 1)
Quarter: 2012Q4

REPORT INFORMATION
  Report Type: 
  Country: IN (occurrence: IN)
  Receive Date: 20121008
  Receipt Date: 20121008
  Transmission Date: 20130627
  Serious: Yes (Other)
  Sender: FDA-Public Use
  Company Number: IN-MYLANLABS-2012S1020229

PATIENT
  Sex: Female

DRUGS (2)
  1. CICLOSPORIN [Suspect]
     Route: 065
  2. MYCOPHENOLATE MOFETIL [Suspect]
     Route: 065

REACTIONS (1)
  - Alveolar proteinosis [Unknown]
